FAERS Safety Report 5132955-4 (Version None)
Quarter: 2006Q4

REPORT INFORMATION
  Report Type: 
  Country: None (occurrence: None)
  Receive Date: 20061023
  Receipt Date: 20061013
  Transmission Date: 20070319
  Serious: Yes (Hospitalization)
  Sender: FDA-Public Use
  Company Number: US-SANOFI-SYNTHELABO-F03200600225

PATIENT
  Sex: Female

DRUGS (4)
  1. OXALIPLATIN [Suspect]
     Indication: COLON CANCER
     Route: 042
  2. FLUOROURACIL [Suspect]
     Indication: COLON CANCER
     Route: 042
  3. LEUCOVORIN CALCIUM [Suspect]
     Indication: COLON CANCER
     Route: 042
  4. BEVACIZUMAB [Suspect]
     Indication: COLON CANCER
     Route: 042

REACTIONS (1)
  - MALLORY-WEISS SYNDROME [None]
